FAERS Safety Report 6942877-1 (Version None)
Quarter: 2010Q3

REPORT INFORMATION
  Report Type: 
  Country: None (occurrence: None)
  Receive Date: 20100824
  Receipt Date: 20100824
  Transmission Date: 20110219
  Serious: Yes (Other)
  Sender: FDA-Public Use
  Company Number: None

PATIENT
  Age: 83 Year
  Sex: Female

DRUGS (2)
  1. SEROQUEL [Suspect]
     Indication: ABNORMAL BEHAVIOUR
     Dosage: AND 2 TABS AT BED STARTING DOSE
     Dates: start: 20100101, end: 20100601
  2. SEROQUEL [Suspect]
     Indication: ABNORMAL BEHAVIOUR
     Dosage: ENDING DOSE
     Dates: start: 20100601, end: 20100701

REACTIONS (4)
  - BALANCE DISORDER [None]
  - FALL [None]
  - GAIT DISTURBANCE [None]
  - LETHARGY [None]
